FAERS Safety Report 9526525 (Version 3)
Quarter: 2014Q2

REPORT INFORMATION
  Report Type: Spontaneous
  Country: US (occurrence: US)
  Receive Date: 20130916
  Receipt Date: 20140425
  Transmission Date: 20141212
  Serious: Yes (Death, Hospitalization, Other)
  Sender: FDA-Public Use
  Company Number: US-B.I. PHARMACEUTICALS,INC./RIDGEFIELD-2013-BI-28571BP

PATIENT
  Age: 77 Year
  Sex: Male
  Weight: 73.48 kg

DRUGS (26)
  1. PRADAXA [Suspect]
     Indication: ATRIAL FIBRILLATION
     Dosage: 300 MG
     Route: 065
     Dates: start: 20110323, end: 20111201
  2. PRADAXA [Suspect]
     Indication: CEREBROVASCULAR ACCIDENT PROPHYLAXIS
     Dosage: 300 MG
     Route: 048
     Dates: end: 20120405
  3. PRADAXA [Suspect]
     Dosage: 150 MG
     Route: 065
     Dates: start: 20120405, end: 20120409
  4. PATANOL [Concomitant]
     Route: 065
  5. PROVENTIL [Concomitant]
     Route: 065
  6. CEFPODOXIME [Concomitant]
     Route: 065
  7. AZITHROMYCIN [Concomitant]
     Route: 065
  8. FLUCONAZOLE [Concomitant]
     Route: 065
  9. CLOTRIMAZOLE [Concomitant]
     Route: 065
  10. PREDNISONE [Concomitant]
     Dosage: 2.5 MG
     Route: 065
  11. PREDNISONE [Concomitant]
     Dosage: 10 MG
     Route: 065
  12. ASPIRIN [Concomitant]
     Dosage: 81 MG
     Route: 065
     Dates: end: 20111201
  13. CALCIUM WITH VITAMIN D [Concomitant]
     Route: 065
  14. PRAVACHOL [Concomitant]
     Route: 065
  15. CALCITROL [Concomitant]
     Route: 065
  16. FLEXERIL [Concomitant]
     Dosage: 20 MG
     Route: 065
  17. PLAQUENIL [Concomitant]
     Dosage: 200 MG
     Route: 065
  18. METOPROLOL [Concomitant]
     Dosage: 25 MG
     Route: 065
  19. OMEPRAZOLE [Concomitant]
     Dosage: 40 MG
     Route: 065
  20. PRAVASTATIN [Concomitant]
     Dosage: 20 MG
     Route: 065
  21. VITAMIN B COMPLEX [Concomitant]
     Route: 065
  22. LEFLUNOMIDE [Concomitant]
     Dosage: 20 MG
     Route: 065
  23. ASCORBIC ACID [Concomitant]
     Dosage: 500 MG
     Route: 065
  24. CALCITONIN [Concomitant]
     Route: 065
  25. MIRALAX [Concomitant]
     Route: 065
  26. SENNOSIDES [Concomitant]
     Route: 065

REACTIONS (8)
  - Gastrointestinal haemorrhage [Fatal]
  - Coagulopathy [Fatal]
  - Renal failure [Fatal]
  - Shock haemorrhagic [Fatal]
  - Constipation [Unknown]
  - Haemorrhagic anaemia [Unknown]
  - Haemoptysis [Recovered/Resolved]
  - Melaena [Unknown]
